FAERS Safety Report 5811441-X (Version None)
Quarter: 2008Q3

REPORT INFORMATION
  Report Type: 
  Country: None (occurrence: None)
  Receive Date: 20080716
  Receipt Date: 20080715
  Transmission Date: 20090109
  Serious: Yes (Hospitalization)
  Sender: FDA-Public Use
  Company Number: PL-EISAI MEDICAL RESEARCH-E2090-00507-CLI-PL

PATIENT
  Sex: Female
  Weight: 60 kg

DRUGS (3)
  1. E2090/CARBAMAZEPINE [Suspect]
     Indication: EPILEPSY
     Dosage: DOUBLE BLIND
     Route: 048
     Dates: start: 20080603, end: 20080601
  2. E2090/CARBAMAZEPINE [Suspect]
     Dosage: DOUBLE BLIND
     Route: 048
     Dates: start: 20080601
  3. E2090/CARBAMAZEPINE [Suspect]
     Dosage: DOUBLE BLIND
     Route: 048
     Dates: end: 20080712

REACTIONS (1)
  - RASH [None]
